FAERS Safety Report 8112445-7 (Version None)
Quarter: 2012Q1

REPORT INFORMATION
  Report Type: 
  Country: None (occurrence: None)
  Receive Date: 20120131
  Receipt Date: 20120116
  Transmission Date: 20120608
  Serious: Yes (Death, Hospitalization)
  Sender: FDA-Public Use
  Company Number: 2012HGS-003155

PATIENT
  Age: 70 Year
  Sex: Male
  Weight: 73.9363 kg

DRUGS (17)
  1. LEVOTHROID (LEVOTHYROXINE SODIUM) (LEVOTHYROXINE SODIUM) [Concomitant]
  2. OMEPRAZOLE [Concomitant]
  3. ASPIRIN [Concomitant]
  4. PREDNISONE [Concomitant]
  5. FOLIC ACID [Concomitant]
  6. IRON (IRON) (IRON) [Concomitant]
  7. BENLYSTA [Suspect]
     Indication: SYSTEMIC LUPUS ERYTHEMATOSUS
     Dosage: 750 MG, 1 IN 28 D, INTRAVENOUS
     Route: 042
     Dates: start: 20110801, end: 20111101
  8. SIMVASTATIN [Concomitant]
  9. PLAQUENIL (HYDROXYCHLOROQUINE PHOSPHATE) (HYDROXYCHLOROQUINE PHOSPHATE [Concomitant]
  10. SPIRONOLACTONE [Concomitant]
  11. CALCIUM PLUS VITAMIN D (CALCIUM D3 /01483701/) (COLECALCIFEROL, CALCIU [Concomitant]
  12. FINASTERIDE (FINASTERIDE) (FINASTERIDE) [Concomitant]
  13. FLUOXETINE [Concomitant]
  14. CARVEDILOL [Concomitant]
  15. FLONASE NASAL SPRAY (FLUTICASONE PROPIONATE) (FLUTICASONE PROPIONATE) [Concomitant]
  16. METHOTREXATE (METHOTREXATE0 (METHOTREXATE) [Concomitant]
  17. FLUDROCORTISONE (FLUDROCORTISONE) (FLUDROCORTISONE) [Concomitant]

REACTIONS (1)
  - DEATH [None]
